FAERS Safety Report 6033128-3 (Version None)
Quarter: 2009Q1

REPORT INFORMATION
  Report Type: 
  Country: None (occurrence: None)
  Receive Date: 20090109
  Receipt Date: 20081201
  Transmission Date: 20090719
  Serious: Yes (Other)
  Sender: FDA-Public Use
  Company Number: US-PFIZER INC-2009151253

PATIENT
  Age: 12 Year
  Sex: Female

DRUGS (13)
  1. ETOPOSIDE [Suspect]
     Indication: EWING'S SARCOMA
     Route: 048
  2. DOXORUBICIN HCL [Suspect]
     Indication: EWING'S SARCOMA
  3. IRINOTECAN HCL [Suspect]
     Indication: EWING'S SARCOMA
  4. CARBOPLATIN [Suspect]
     Indication: EWING'S SARCOMA
  5. CYCLOPHOSPHAMIDE [Suspect]
     Indication: EWING'S SARCOMA
  6. VINCRISTINE SULFATE [Suspect]
     Indication: EWING'S SARCOMA
  7. VINBLASTINE SULFATE [Suspect]
     Indication: EWING'S SARCOMA
  8. TOPOTECAN HYDROCHLORIDE [Suspect]
     Indication: EWING'S SARCOMA
  9. MELPHALAN [Suspect]
     Indication: EWING'S SARCOMA
  10. THIOTEPA [Suspect]
     Indication: EWING'S SARCOMA
  11. FLUDARABINE PHOSPHATE [Suspect]
     Indication: EWING'S SARCOMA
  12. IFOSFAMIDE [Suspect]
     Indication: EWING'S SARCOMA
  13. INVESTIGATIONAL DRUG [Suspect]
     Indication: EWING'S SARCOMA

REACTIONS (7)
  - ANTI-GAD ANTIBODY [None]
  - ASTHENIA [None]
  - HYPOAESTHESIA [None]
  - PARAPLEGIA [None]
  - REFLEXES ABNORMAL [None]
  - SENSORY LOSS [None]
  - SPINAL DISORDER [None]
